FAERS Safety Report 14596602 (Version 1)
Quarter: 2018Q1

REPORT INFORMATION
  Report Type: Spontaneous
  Country: US (occurrence: US)
  Receive Date: 20180304
  Receipt Date: 20180304
  Transmission Date: 20180509
  Serious: No
  Sender: FDA-Public Use
  Company Number: US-JNJFOC-20180228159

PATIENT
  Age: 29 Year
  Sex: Male
  Weight: 107.96 kg

DRUGS (1)
  1. TOPAMAX [Suspect]
     Active Substance: TOPIRAMATE
     Indication: EPILEPSY
     Route: 048

REACTIONS (2)
  - Product availability issue [Unknown]
  - Drug dose omission [Unknown]

NARRATIVE: CASE EVENT DATE: 20180130
